FAERS Safety Report 13179904 (Version 1)
Quarter: 2017Q1

REPORT INFORMATION
  Report Type: Other
  Country: DE (occurrence: DE)
  Receive Date: 20170202
  Receipt Date: 20170202
  Transmission Date: 20170428
  Serious: Yes (Other)
  Sender: FDA-Public Use
  Company Number: DE-CELLTRION INC.-2016DE013867

PATIENT

DRUGS (9)
  1. REMSIMA [Suspect]
     Active Substance: INFLIXIMAB
     Dosage: 900 MG,EVERY 8 WEEKS
     Route: 042
     Dates: start: 20161025, end: 20161025
  2. REMSIMA [Suspect]
     Active Substance: INFLIXIMAB
     Dosage: 900 MG,EVERY 8 WEEKS
     Route: 042
     Dates: start: 20161123, end: 20161123
  3. PREDNISOLONE. [Concomitant]
     Active Substance: PREDNISOLONE
     Dosage: UNK
  4. REMSIMA [Suspect]
     Active Substance: INFLIXIMAB
     Indication: COLITIS ULCERATIVE
     Dosage: 900 MG,EVERY 8 WEEKS
     Route: 042
     Dates: start: 20160823, end: 20160823
  5. REMSIMA [Suspect]
     Active Substance: INFLIXIMAB
     Dosage: 900 MG,EVERY 8 WEEKS
     Route: 042
     Dates: start: 20160927, end: 20160927
  6. CLAVERSAL [Concomitant]
     Active Substance: MESALAMINE
     Dosage: UNK
     Dates: start: 201601
  7. REMSIMA [Suspect]
     Active Substance: INFLIXIMAB
     Dosage: 900 MG,EVERY 8 WEEKS
     Route: 042
     Dates: start: 20160906, end: 20160906
  8. SALOFALK                           /00747601/ [Concomitant]
     Active Substance: MESALAMINE
     Dosage: UNK
  9. ASPIRIN. [Concomitant]
     Active Substance: ASPIRIN
     Dosage: UNK
     Dates: start: 2013

REACTIONS (2)
  - Hepatitis [Not Recovered/Not Resolved]
  - Inappropriate schedule of drug administration [Unknown]

NARRATIVE: CASE EVENT DATE: 20161212
